FAERS Safety Report 19432991 (Version 1)
Quarter: 2021Q2

REPORT INFORMATION
  Report Type: Other
  Country: US (occurrence: US)
  Receive Date: 20210617
  Receipt Date: 20210617
  Transmission Date: 20210717
  Serious: Yes (Hospitalization, Other)
  Sender: FDA-Public Use
  Company Number: US-ROCHE-2440257

PATIENT
  Age: 50 Year
  Sex: Male
  Weight: 68.1 kg

DRUGS (7)
  1. OCREVUS [Suspect]
     Active Substance: OCRELIZUMAB
     Indication: SECONDARY PROGRESSIVE MULTIPLE SCLEROSIS
  2. BACLOFEN. [Concomitant]
     Active Substance: BACLOFEN
     Route: 048
  3. OCREVUS [Suspect]
     Active Substance: OCRELIZUMAB
     Indication: PRIMARY PROGRESSIVE MULTIPLE SCLEROSIS
  4. FLOMAX [Concomitant]
     Active Substance: TAMSULOSIN HYDROCHLORIDE
     Route: 048
  5. OCREVUS [Suspect]
     Active Substance: OCRELIZUMAB
     Indication: MULTIPLE SCLEROSIS
     Dosage: 300 MG EVERY 2 WEEKS IV, INFUSE 600MG EVERY 6 MONTHS
     Route: 042
     Dates: start: 20190422
  6. BACLOFEN. [Concomitant]
     Active Substance: BACLOFEN
     Dosage: INTERNAL PUMP
  7. XANAX [Concomitant]
     Active Substance: ALPRAZOLAM

REACTIONS (3)
  - Multiple sclerosis [Not Recovered/Not Resolved]
  - Urinary tract infection [Recovered/Resolved]
  - Depression [Unknown]

NARRATIVE: CASE EVENT DATE: 202105
